FAERS Safety Report 9000322 (Version 1)
Quarter: 2013Q1

REPORT INFORMATION
  Report Type: Spontaneous
  Country: US (occurrence: None)
  Receive Date: 20130102
  Receipt Date: 20130102
  Transmission Date: 20140127
  Serious: Yes (Hospitalization)
  Sender: FDA-Public Use
  Company Number: None

PATIENT
  Sex: Female
  Weight: 49.55 kg

DRUGS (2)
  1. CISPLATIN [Suspect]
     Dates: end: 20121217
  2. PACLITAXEL (TAXOL) [Suspect]
     Dates: end: 20121217

REACTIONS (6)
  - Fatigue [None]
  - Blood magnesium abnormal [None]
  - Dehydration [None]
  - Diarrhoea [None]
  - Ear infection [None]
  - Neutrophil count decreased [None]
